FAERS Safety Report 5153429-0 (Version None)
Quarter: 2006Q4

REPORT INFORMATION
  Report Type: 
  Country: None (occurrence: None)
  Receive Date: 20061114
  Receipt Date: 20061101
  Transmission Date: 20070319
  Serious: Yes (Other)
  Sender: FDA-Public Use
  Company Number: 6027038F

PATIENT
  Sex: Male

DRUGS (1)
  1. NICOTINIC ACID [Suspect]
     Indication: HYPERCHOLESTEROLAEMIA
     Dates: end: 20060101

REACTIONS (1)
  - CONVULSION [None]
